FAERS Safety Report 17001717 (Version 1)
Quarter: 2019Q4

REPORT INFORMATION
  Report Type: Spontaneous
  Country: AT (occurrence: AT)
  Receive Date: 20191106
  Receipt Date: 20191106
  Transmission Date: 20200122
  Serious: Yes (Hospitalization, Other)
  Sender: FDA-Public Use
  Company Number: AT-009507513-1911AUT000046

PATIENT
  Age: 19 Year
  Sex: Female
  Weight: 73 kg

DRUGS (1)
  1. IMPLANON NXT [Suspect]
     Active Substance: ETONOGESTREL
     Indication: CONTRACEPTION
     Dosage: ROD IMPLANT
     Route: 059
     Dates: start: 20191010, end: 20191016

REACTIONS (9)
  - Syncope [Recovered/Resolved]
  - Pain [Recovered/Resolved]
  - Vertigo [Recovered/Resolved]
  - Muscle spasms [Recovered/Resolved]
  - Implant site reaction [Not Recovered/Not Resolved]
  - Brain contusion [Recovered/Resolved]
  - Nausea [Recovered/Resolved]
  - Visual impairment [Recovered/Resolved]
  - Loss of consciousness [Recovered/Resolved]

NARRATIVE: CASE EVENT DATE: 20191010
